FAERS Safety Report 14462173 (Version 2)
Quarter: 2018Q1

REPORT INFORMATION
  Report Type: Spontaneous
  Country: GB (occurrence: GB)
  Receive Date: 20180130
  Receipt Date: 20180226
  Transmission Date: 20180509
  Serious: Yes (Other)
  Sender: FDA-Public Use
  Company Number: GB-PFIZER INC-2018036201

PATIENT
  Age: 81 Year
  Sex: Female

DRUGS (6)
  1. AMLODIPINE [Concomitant]
     Active Substance: AMLODIPINE BESYLATE
     Dosage: 5 MG, UNK
     Route: 048
  2. DDAVP [Concomitant]
     Active Substance: DESMOPRESSIN ACETATE
     Dosage: 100 UG, 2X/DAY
     Route: 048
  3. HYDROCORTISONE. [Concomitant]
     Active Substance: HYDROCORTISONE
     Dosage: 20 MG, DAILY (10MG MORNING, 5MG MIDDAY, 5MG AFTERNOON)
     Route: 048
  4. LEVOTHYROXINE. [Concomitant]
     Active Substance: LEVOTHYROXINE
     Dosage: 100 UG, 1X/DAY
     Route: 048
  5. LOSARTAN. [Concomitant]
     Active Substance: LOSARTAN
     Dosage: 25 MG, 1X/DAY
     Route: 048
  6. GENOTROPIN [Suspect]
     Active Substance: SOMATROPIN
     Dosage: 0.2 MG, WEEKLY, (EVERY THURSDAY)
     Route: 058
     Dates: start: 20171011

REACTIONS (4)
  - Gastroenteritis norovirus [Unknown]
  - Pneumonia [Unknown]
  - Malaise [Unknown]
  - Confusional state [Recovering/Resolving]

NARRATIVE: CASE EVENT DATE: 201712
